FAERS Safety Report 11869542 (Version 1)
Quarter: 2015Q4

REPORT INFORMATION
  Report Type: Report from Study
  Country: ID (occurrence: ID)
  Receive Date: 20151228
  Receipt Date: 20151228
  Transmission Date: 20160305
  Serious: Yes (Other)
  Sender: FDA-Public Use
  Company Number: ID-ROCHE-1683978

PATIENT
  Age: 57 Year
  Sex: Female

DRUGS (2)
  1. BONDRONAT [Suspect]
     Active Substance: IBANDRONIC ACID
     Indication: HYPERCALCAEMIA
  2. BONDRONAT [Suspect]
     Active Substance: IBANDRONIC ACID
     Indication: METASTASES TO BONE
     Route: 065
     Dates: start: 20141124, end: 20150322

REACTIONS (5)
  - Dyspnoea [Unknown]
  - Fracture [Unknown]
  - Pain [Unknown]
  - Paralysis [Unknown]
  - Abasia [Unknown]
